FAERS Safety Report 4513217-2 (Version None)
Quarter: 2004Q4

REPORT INFORMATION
  Report Type: 
  Country: None (occurrence: None)
  Receive Date: 20041130
  Receipt Date: 20020524
  Transmission Date: 20050328
  Serious: Yes (Death, Hospitalization)
  Sender: FDA-Public Use
  Company Number: US-MERCK-0205USA03057

PATIENT
  Age: 37 Year
  Sex: Male
  Weight: 93 kg

DRUGS (4)
  1. VIOXX [Suspect]
     Indication: BACK PAIN
     Route: 048
     Dates: start: 20010206, end: 20010316
  2. SOMA [Concomitant]
     Route: 065
  3. ELAVIL [Concomitant]
     Route: 065
  4. ESGIC-PLUS TABLETS [Concomitant]
     Route: 065

REACTIONS (5)
  - ACUTE MYOCARDIAL INFARCTION [None]
  - BRAIN DEATH [None]
  - CARDIAC ARREST [None]
  - CORONARY ARTERY DISEASE [None]
  - HYPOXIC ENCEPHALOPATHY [None]
